FAERS Safety Report 9654820 (Version 1)
Quarter: 2013Q4

REPORT INFORMATION
  Report Type: Spontaneous
  Country: US (occurrence: US)
  Receive Date: 20131029
  Receipt Date: 20131029
  Transmission Date: 20140711
  Serious: Yes (Other)
  Sender: FDA-Public Use
  Company Number: US-NAPPMUNDI-USA-2012-0093122

PATIENT
  Sex: Female

DRUGS (26)
  1. OXYCODONE HYDROCHLORIDE (SIMILAR TO NDA 20-553) [Suspect]
     Indication: PAIN
     Dosage: 30 MG, UNK
     Route: 048
     Dates: start: 20110131, end: 20120610
  2. OXYCODONE HYDROCHLORIDE (SIMILAR TO NDA 20-553) [Suspect]
     Dosage: 30 MG, UNK
     Route: 048
     Dates: start: 20120610, end: 20120617
  3. OXYCODONE HYDROCHLORIDE (SIMILAR TO NDA 20-553) [Suspect]
     Dosage: 30 MG, UNK
     Route: 048
     Dates: end: 20120731
  4. COLACE [Concomitant]
     Indication: PRODUCT USED FOR UNKNOWN INDICATION
     Dosage: 1 UNK, UNK
     Route: 048
     Dates: start: 20110829
  5. IMITREX                            /01044801/ [Concomitant]
     Indication: PRODUCT USED FOR UNKNOWN INDICATION
     Dosage: UNKNOWN
  6. FLONASE [Concomitant]
     Indication: PRODUCT USED FOR UNKNOWN INDICATION
     Dosage: 2 SPRAY, PRN
     Route: 045
     Dates: start: 20120727
  7. KLOR-CON M20 [Concomitant]
     Indication: PRODUCT USED FOR UNKNOWN INDICATION
     Dosage: 20 MEQ, DAILY
     Route: 048
     Dates: start: 20120727
  8. SYMBICORT [Concomitant]
     Indication: PRODUCT USED FOR UNKNOWN INDICATION
     Dosage: 2 PUFF, BID
     Dates: start: 20120727
  9. THEO-24 [Concomitant]
     Indication: PRODUCT USED FOR UNKNOWN INDICATION
     Dosage: 1 CAPSL, BID
     Dates: start: 20120727
  10. XYLOCAINE                          /00033401/ [Concomitant]
     Indication: PAIN
     Dosage: UNK UNK, PRN
     Dates: start: 20120727
  11. ZOFRAN                             /00955301/ [Concomitant]
     Indication: NAUSEA
     Dosage: 1 UNK, UNK
     Dates: start: 20120709
  12. ZOFRAN                             /00955301/ [Concomitant]
     Indication: VOMITING
  13. EFFEXOR XR [Concomitant]
     Indication: PRODUCT USED FOR UNKNOWN INDICATION
     Dosage: 1 CAPSL, DAILY
     Dates: start: 20120531
  14. CREON 20 [Concomitant]
     Indication: PRODUCT USED FOR UNKNOWN INDICATION
     Dosage: 2 CAPSL, TID
     Route: 048
     Dates: start: 20120531
  15. MIRALAX                            /00754501/ [Concomitant]
     Indication: PRODUCT USED FOR UNKNOWN INDICATION
     Dosage: 17G IN LIQUID DAILY
     Route: 048
     Dates: start: 20110829
  16. MUSCLE RELAXANTS [Concomitant]
     Indication: MUSCLE SPASMS
     Dosage: UNK
  17. XANAX XR [Concomitant]
     Indication: ANXIETY
  18. XANAX XR [Concomitant]
     Indication: PANIC ATTACK
  19. TIGER BALM                         /00734101/ [Concomitant]
     Indication: PRODUCT USED FOR UNKNOWN INDICATION
     Dosage: UNK
  20. ARISTOCORT                         /00031901/ [Concomitant]
     Indication: PRODUCT USED FOR UNKNOWN INDICATION
     Dosage: 1 APPLIC, BID
     Dates: start: 20110829
  21. DESYREL [Concomitant]
     Indication: PRODUCT USED FOR UNKNOWN INDICATION
     Dosage: 1 TABLET, HS
     Route: 048
     Dates: start: 20110829
  22. PHENERGAN                          /00033001/ [Concomitant]
     Indication: PRODUCT USED FOR UNKNOWN INDICATION
     Dosage: 1 SUPP., Q6H PRN
     Route: 048
     Dates: start: 20110829
  23. VITAMIN D3 [Concomitant]
     Indication: PRODUCT USED FOR UNKNOWN INDICATION
     Dosage: 1000 UNIT, DAILY
     Route: 048
     Dates: start: 20110829
  24. MULTIVITAMIN                       /00097801/ [Concomitant]
     Indication: PRODUCT USED FOR UNKNOWN INDICATION
     Dosage: 1 TABLET, DAILY
     Route: 048
     Dates: start: 20110829
  25. VITAMIN B-12 [Concomitant]
     Indication: PRODUCT USED FOR UNKNOWN INDICATION
     Dosage: 1 TABLET, DAILY
     Route: 048
     Dates: start: 20110829
  26. MARIJUANA [Concomitant]
     Indication: PRODUCT USED FOR UNKNOWN INDICATION

REACTIONS (7)
  - Drug dependence [Unknown]
  - Drug withdrawal syndrome [Unknown]
  - Drug intolerance [Unknown]
  - Nausea [Unknown]
  - Vomiting [Unknown]
  - Migraine [Unknown]
  - Insomnia [Unknown]
